FAERS Safety Report 7920440-3 (Version None)
Quarter: 2011Q4

REPORT INFORMATION
  Report Type: 
  Country: None (occurrence: None)
  Receive Date: 20111117
  Receipt Date: 20111107
  Transmission Date: 20120403
  Serious: Yes (Hospitalization, Other)
  Sender: FDA-Public Use
  Company Number: PHHY2011DE29579

PATIENT
  Sex: Male
  Weight: 73 kg

DRUGS (14)
  1. IMODIUM [Concomitant]
     Dosage: UNK
     Dates: start: 20080924
  2. EPOGEN [Concomitant]
     Dosage: 10000 IU EVERY WEEK
     Dates: start: 20070913
  3. CARVEDILOL [Concomitant]
     Dosage: UNK
     Dates: start: 20101014
  4. ASPIRIN [Concomitant]
     Dosage: UNK
     Dates: start: 20041201
  5. TASIGNA [Suspect]
     Indication: CHRONIC MYELOID LEUKAEMIA
     Dosage: 800 MG, DAILY
     Route: 048
     Dates: start: 20091121, end: 20101203
  6. DIGIMERCK [Concomitant]
     Dosage: UNK
     Dates: start: 20101116
  7. CYANOCOBALAMIN [Concomitant]
     Dosage: 1000 MG EVERY 3 MONTHS
     Dates: start: 20071114
  8. OFLOXACIN [Concomitant]
     Dosage: UNK
     Dates: start: 20100522, end: 20100601
  9. TORSEMIDE [Concomitant]
     Dosage: UNK
     Dates: start: 20101116
  10. CORVATON - SLOW RELEASE [Concomitant]
     Dosage: UNK
     Dates: start: 20101014
  11. ALLOPURINOL [Concomitant]
     Dosage: UNK
     Dates: start: 20041201, end: 20101101
  12. METOPROLOL SUCCINATE [Concomitant]
     Dosage: UNK
     Dates: start: 20041201, end: 20101013
  13. CIPRO [Concomitant]
     Dosage: UNK
     Dates: start: 20100521, end: 20100611
  14. TORSEMIDE [Concomitant]
     Dosage: UNK
     Dates: start: 20101014, end: 20101115

REACTIONS (16)
  - PULMONARY CONGESTION [None]
  - ELECTROCARDIOGRAM QT PROLONGED [None]
  - GENERAL PHYSICAL HEALTH DETERIORATION [None]
  - ASTHENIA [None]
  - PLEURAL EFFUSION [None]
  - DYSPNOEA [None]
  - VOMITING [None]
  - NAUSEA [None]
  - INFLAMMATION [None]
  - C-REACTIVE PROTEIN INCREASED [None]
  - ABDOMINAL DISCOMFORT [None]
  - TACHYARRHYTHMIA [None]
  - ATRIAL FIBRILLATION [None]
  - CHEST PAIN [None]
  - DIARRHOEA [None]
  - PERICARDIAL EFFUSION [None]
